FAERS Safety Report 6594261-0 (Version None)
Quarter: 2010Q1

REPORT INFORMATION
  Report Type: 
  Country: None (occurrence: None)
  Receive Date: 20100222
  Receipt Date: 20100216
  Transmission Date: 20100710
  Serious: Yes (Other)
  Sender: FDA-Public Use
  Company Number: JP-MERCK-0911USA04826

PATIENT
  Age: 73 Year
  Sex: Female
  Weight: 45 kg

DRUGS (11)
  1. FOSAMAX [Suspect]
     Indication: OSTEOPOROSIS
     Route: 048
     Dates: start: 20010901, end: 20071201
  2. LOPRESSOR [Concomitant]
     Indication: HYPERTENSION
     Route: 048
  3. NORVASC [Concomitant]
     Indication: HYPERTENSION
     Route: 048
  4. LUPRAC [Concomitant]
     Indication: HYPERTENSION
     Route: 048
  5. MICARDIS [Concomitant]
     Indication: HYPERTENSION
     Route: 048
  6. CYSTEINE HYDROCHLORIDE [Concomitant]
     Indication: BRONCHITIS CHRONIC
     Route: 048
  7. FLAVITAN [Concomitant]
     Route: 048
  8. GASTER [Concomitant]
     Indication: GASTRITIS
     Route: 048
  9. METHYCOBAL [Concomitant]
     Route: 048
  10. VOLTAREN [Concomitant]
     Indication: SPINAL OSTEOARTHRITIS
     Route: 048
  11. LOXONIN [Concomitant]
     Indication: SPINAL OSTEOARTHRITIS
     Route: 048

REACTIONS (3)
  - OSTEONECROSIS [None]
  - PARAESTHESIA ORAL [None]
  - TOOTH EXTRACTION [None]
